FAERS Safety Report 15234743 (Version 1)
Quarter: 2018Q3

REPORT INFORMATION
  Report Type: Spontaneous
  Country: PT (occurrence: PT)
  Receive Date: 20180803
  Receipt Date: 20180803
  Transmission Date: 20181010
  Serious: Yes (Hospitalization, Other)
  Sender: FDA-Public Use
  Company Number: PT-TEVA-2018-PT-933205

PATIENT
  Age: 51 Year
  Sex: Female

DRUGS (5)
  1. ACARILBIAL [Concomitant]
     Indication: BLISTER
     Dosage: 1 DOSAGE FORMS DAILY;
     Route: 061
     Dates: start: 201401, end: 20140126
  2. OLFEN [Concomitant]
     Active Substance: DICLOFENAC SODIUM
     Indication: BLISTER
     Dosage: 100 MILLIGRAM DAILY;
     Route: 048
     Dates: start: 20140119
  3. DESLORATADINE. [Concomitant]
     Active Substance: DESLORATADINE
     Indication: BLISTER
     Dosage: 1 DOSAGE FORMS DAILY;
     Route: 048
     Dates: start: 201401
  4. CIPROFLOXACIN. [Suspect]
     Active Substance: CIPROFLOXACIN
     Indication: BLISTER
     Dosage: 1000 MILLIGRAM DAILY;
     Route: 048
     Dates: start: 20140119, end: 20140126
  5. FUCIDINE [Concomitant]
     Active Substance: FUSIDIC ACID
     Indication: BLISTER
     Dosage: 1 DOSAGE FORMS DAILY;
     Route: 061
     Dates: start: 20140119

REACTIONS (2)
  - Dermatitis bullous [Recovered/Resolved]
  - Toxic skin eruption [Recovered/Resolved]

NARRATIVE: CASE EVENT DATE: 20140125
